FAERS Safety Report 7167103-2 (Version None)
Quarter: 2010Q4

REPORT INFORMATION
  Report Type: 
  Country: None (occurrence: None)
  Receive Date: 20101216
  Receipt Date: 20101207
  Transmission Date: 20110411
  Serious: Yes (Other)
  Sender: FDA-Public Use
  Company Number: FR-ASTRAZENECA-2010SE22926

PATIENT
  Age: 24315 Day
  Sex: Male
  Weight: 63 kg

DRUGS (6)
  1. NEXIUM [Suspect]
     Indication: GASTROOESOPHAGEAL REFLUX DISEASE
     Route: 048
     Dates: start: 20100401
  2. NEXIUM [Interacting]
     Route: 048
  3. PREVISCAN [Interacting]
     Dosage: 1/4 TABLET PER DAY FOR TWO DAYS, 1/2 TABLET FOR ONE DAY AND THEN, 1/4 TABLET PER DAY FOR TWO DAYS..
     Route: 048
  4. FLECAINIDE ACETATE [Concomitant]
  5. PRAVASTATIN [Concomitant]
  6. GAVISCON [Concomitant]

REACTIONS (3)
  - DRUG INTERACTION [None]
  - GASTRIC CANCER [None]
  - INTERNATIONAL NORMALISED RATIO INCREASED [None]
